FAERS Safety Report 11058216 (Version 1)
Quarter: 2015Q2

REPORT INFORMATION
  Report Type: Spontaneous
  Country: US (occurrence: None)
  Receive Date: 20150420
  Receipt Date: 20150420
  Transmission Date: 20150821
  Serious: No
  Sender: FDA-Public Use
  Company Number: AEGR001235

PATIENT
  Age: 70 Year
  Sex: Female
  Weight: 60.8 kg

DRUGS (12)
  1. JUXTAPID [Suspect]
     Active Substance: LOMITAPIDE MESYLATE
     Indication: TYPE IIA HYPERLIPIDAEMIA
     Route: 048
     Dates: start: 20150306, end: 20150309
  2. VALIUM [Concomitant]
     Active Substance: DIAZEPAM
  3. BYSTOLIC [Concomitant]
     Active Substance: NEBIVOLOL HYDROCHLORIDE
  4. CALCIUM CARBONATE) [Concomitant]
  5. MAGNESIUM [Concomitant]
     Active Substance: MAGNESIUM
  6. VITAMIN E [Suspect]
     Active Substance: .ALPHA.-TOCOPHEROL
     Indication: PRODUCT USED FOR UNKNOWN INDICATION
  7. DOCUSATE [Concomitant]
     Active Substance: DOCUSATE
  8. MULTIVITAMINS (ASCORBIC ACID, ERGOCALCIFEROL, FOLIC ACID, NICOTINAMIDE, PANTHENOL, RETINOL, RIBOFLAVIN, THIAMINE HYDROCHLORIDE) [Concomitant]
     Active Substance: VITAMINS
  9. COQ10 (UBIDECARENONE) [Concomitant]
     Active Substance: UBIDECARENONE
  10. AMLODIPINE BESILATE W/LOSARTAN POTASSIUM [Concomitant]
  11. POTASSIUM (POTASSIUM BICARBONATE, POTASSIUM CHLORIDE) [Concomitant]
  12. OMEGA 3-6-9 [Suspect]
     Active Substance: FISH OIL
     Indication: PRODUCT USED FOR UNKNOWN INDICATION
     Dates: end: 2015

REACTIONS (7)
  - Hot flush [None]
  - Drug dose omission [None]
  - Therapy cessation [None]
  - Nausea [None]
  - Flushing [None]
  - Pruritus [None]
  - Headache [None]

NARRATIVE: CASE EVENT DATE: 20150309
